FAERS Safety Report 24376282 (Version 3)
Quarter: 2025Q1

REPORT INFORMATION
  Report Type: Report from Study
  Country: US (occurrence: US)
  Receive Date: 20240930
  Receipt Date: 20250219
  Transmission Date: 20250409
  Serious: Yes (Other)
  Sender: ABBVIE
  Company Number: US-ABBVIE-5939591

PATIENT
  Age: 62 Year
  Sex: Female

DRUGS (2)
  1. SKYRIZI [Suspect]
     Active Substance: RISANKIZUMAB-RZAA
     Indication: Psoriasis
     Route: 058
     Dates: start: 20220325
  2. SKYRIZI [Suspect]
     Active Substance: RISANKIZUMAB-RZAA
     Indication: Psoriatic arthropathy
     Route: 058
     Dates: start: 20230414, end: 20241220

REACTIONS (6)
  - Metastatic neoplasm [Not Recovered/Not Resolved]
  - Brain neoplasm malignant [Not Recovered/Not Resolved]
  - Lung carcinoma cell type unspecified stage IV [Not Recovered/Not Resolved]
  - Seizure [Recovered/Resolved]
  - Seizure [Recovered/Resolved]
  - Neoplasm malignant [Unknown]

NARRATIVE: CASE EVENT DATE: 20240101
